FAERS Safety Report 7412451-1 (Version None)
Quarter: 2011Q2

REPORT INFORMATION
  Report Type: 
  Country: None (occurrence: None)
  Receive Date: 20110413
  Receipt Date: 20110401
  Transmission Date: 20111010
  Serious: Yes (Other)
  Sender: FDA-Public Use
  Company Number: PHHY2011CA27486

PATIENT
  Sex: Female

DRUGS (2)
  1. SANDOSTATIN LAR [Suspect]
     Indication: NEUROENDOCRINE TUMOUR
     Dosage: 30 MG, QMO
     Route: 030
     Dates: start: 20100621
  2. ASPIRIN [Concomitant]

REACTIONS (3)
  - ANORECTAL DISCOMFORT [None]
  - INJECTION SITE HAEMORRHAGE [None]
  - DIARRHOEA [None]
